FAERS Safety Report 5340085-1 (Version None)
Quarter: 2007Q2

REPORT INFORMATION
  Report Type: 
  Country: None (occurrence: None)
  Receive Date: 20070525
  Receipt Date: 20070525
  Transmission Date: 20071010
  Serious: Yes (Hospitalization)
  Sender: FDA-Public Use
  Company Number: None

PATIENT
  Age: 71 Year
  Sex: Female
  Weight: 90.7194 kg

DRUGS (9)
  1. PROGRAF [Suspect]
     Indication: HEART TRANSPLANT
     Dosage: 2.5 MG BID PO
     Route: 048
     Dates: start: 19930101
  2. PROGRAF [Concomitant]
  3. ACTOS [Concomitant]
  4. LASIX [Concomitant]
  5. PRILOSEC [Concomitant]
  6. POTASSIUM ACETATE [Concomitant]
  7. IRBESARTAN [Concomitant]
  8. XANAX [Concomitant]
  9. INSULIN [Concomitant]

REACTIONS (9)
  - DRUG TOXICITY [None]
  - INFECTION [None]
  - RENAL FAILURE ACUTE [None]
  - RENAL ISCHAEMIA [None]
  - RENAL TRANSPLANT [None]
  - RENAL TUBULAR NECROSIS [None]
  - THROMBOCYTOPENIA [None]
  - THROMBOTIC MICROANGIOPATHY [None]
  - TREMOR [None]
